FAERS Safety Report 18789447 (Version 1)
Quarter: 2021Q1

REPORT INFORMATION
  Report Type: Report from Study
  Country: CA (occurrence: CA)
  Receive Date: 20210126
  Receipt Date: 20210126
  Transmission Date: 20210419
  Serious: Yes (Other)
  Sender: FDA-Public Use
  Company Number: CA-NALPROPION PHARMACEUTICALS INC.-2020-011783

PATIENT

DRUGS (7)
  1. CONTRAVE [Suspect]
     Active Substance: BUPROPION HYDROCHLORIDE\NALTREXONE HYDROCHLORIDE
     Dosage: 90/8 MG, 1 TABLETS IN MORNING (AM), 1 TABLETS IN PM (EVENING)
     Route: 048
     Dates: start: 20201030, end: 20201112
  2. CONTRAVE [Suspect]
     Active Substance: BUPROPION HYDROCHLORIDE\NALTREXONE HYDROCHLORIDE
     Dosage: 90/8 MG, 1 TABLETS IN MORNING (AM)
     Route: 048
     Dates: start: 20201113, end: 20201231
  3. CONTRAVE [Suspect]
     Active Substance: BUPROPION HYDROCHLORIDE\NALTREXONE HYDROCHLORIDE
     Indication: WEIGHT CONTROL
     Dosage: 90/8 MG, 2 TABLETS IN MORNING (AM), 2 TABLETS IN PM (EVENING)
     Route: 048
     Dates: start: 20201019, end: 20201025
  4. CONTRAVE [Suspect]
     Active Substance: BUPROPION HYDROCHLORIDE\NALTREXONE HYDROCHLORIDE
     Dosage: 90/8 MG, 2 TABLETS IN MORNING (AM), 1 TABLETS IN PM (EVENING)
     Route: 048
     Dates: start: 20201026, end: 20201029
  5. CONTRAVE [Suspect]
     Active Substance: BUPROPION HYDROCHLORIDE\NALTREXONE HYDROCHLORIDE
     Dosage: 90/8 MG, 1 TABLET IN MORNING (AM)
     Route: 048
     Dates: start: 20210103
  6. CRESTOR [Concomitant]
     Active Substance: ROSUVASTATIN CALCIUM
     Indication: BLOOD CHOLESTEROL
     Dosage: 1 IN 1 D
     Route: 048
  7. ALCOHOL. [Interacting]
     Active Substance: ALCOHOL
     Indication: PRODUCT USED FOR UNKNOWN INDICATION
     Dosage: UNK
     Route: 065

REACTIONS (16)
  - Immobile [Recovered/Resolved]
  - Taste disorder [Recovered/Resolved]
  - Hypertension [Recovered/Resolved]
  - Panic reaction [Recovered/Resolved]
  - Increased appetite [Recovered/Resolved]
  - Insomnia [Recovered/Resolved]
  - Headache [Recovered/Resolved]
  - Product dose omission issue [Unknown]
  - Heart rate decreased [Recovered/Resolved]
  - Attention deficit hyperactivity disorder [Recovered/Resolved]
  - Skin warm [Recovered/Resolved]
  - Dizziness [Recovered/Resolved]
  - Disturbance in attention [Recovered/Resolved]
  - Labelled drug-food interaction medication error [Unknown]
  - Libido decreased [Recovered/Resolved]
  - Heart rate increased [Recovered/Resolved]

NARRATIVE: CASE EVENT DATE: 2020
